FAERS Safety Report 7594524 (Version 2)
Quarter: 2013Q3

REPORT INFORMATION
  Report Type: Spontaneous
  Country: US (occurrence: US)
  Receive Date: 20100920
  Receipt Date: 20130906
  Transmission Date: 20140515
  Serious: Yes (Other)
  Sender: FDA-Public Use
  Company Number: US-RANBAXY-2010US-37985

PATIENT
  Age: 80 Year
  Sex: Female

DRUGS (4)
  1. IBUPROFEN [Suspect]
     Indication: ARTHRALGIA
     Dosage: 600 MG, EVERY 8 HOURS AS NEEDED
     Route: 048
  2. NAPROXEN [Suspect]
     Indication: ARTHRALGIA
     Dosage: 375 MG, EVERY EIGHT HOURS AS NEEDED
     Route: 048
  3. ACETAMINOPHEN [Concomitant]
     Indication: PAIN IN EXTREMITY
     Dosage: UNK
     Route: 048
  4. FOSINOPRIL SODIUM [Concomitant]
     Indication: HYPERTENSION
     Dosage: 40MG/DAY
     Route: 048

REACTIONS (3)
  - Periorbital oedema [Recovered/Resolved]
  - Erythema [Recovered/Resolved]
  - Pruritus [Recovered/Resolved]
